FAERS Safety Report 13403127 (Version 1)
Quarter: 2017Q2

REPORT INFORMATION
  Report Type: Spontaneous
  Country: US (occurrence: US)
  Receive Date: 20170404
  Receipt Date: 20170404
  Transmission Date: 20170830
  Serious: No
  Sender: FDA-Public Use
  Company Number: US-ROCHE-1810345

PATIENT
  Sex: Female
  Weight: 57.2 kg

DRUGS (3)
  1. EYLEA [Suspect]
     Active Substance: AFLIBERCEPT
     Route: 031
     Dates: start: 20160708, end: 20160708
  2. AVASTIN [Suspect]
     Active Substance: BEVACIZUMAB
     Indication: NEOVASCULAR AGE-RELATED MACULAR DEGENERATION
     Route: 031
  3. EYLEA [Suspect]
     Active Substance: AFLIBERCEPT
     Indication: NEOVASCULAR AGE-RELATED MACULAR DEGENERATION
     Route: 031
     Dates: start: 201604

REACTIONS (10)
  - Off label use [Unknown]
  - Photopsia [Recovered/Resolved]
  - Nausea [Recovered/Resolved]
  - Rhinorrhoea [Recovered/Resolved]
  - Macular oedema [Not Recovered/Not Resolved]
  - Headache [Recovered/Resolved]
  - Migraine [Recovering/Resolving]
  - Abnormal sensation in eye [Unknown]
  - Jaw disorder [Recovered/Resolved]
  - Lacrimation increased [Unknown]

NARRATIVE: CASE EVENT DATE: 20160711
